FAERS Safety Report 8831854 (Version 1)
Quarter: 2012Q4

REPORT INFORMATION
  Report Type: Report from Study
  Country: BE (occurrence: BE)
  Receive Date: 20121009
  Receipt Date: 20121009
  Transmission Date: 20130627
  Serious: Yes (Other)
  Sender: FDA-Public Use
  Company Number: BE-ROCHE-1137938

PATIENT
  Age: 40 Year
  Sex: Female
  Weight: 74 kg

DRUGS (19)
  1. HERCEPTIN [Suspect]
     Indication: BREAST CANCER METASTATIC
     Route: 065
     Dates: start: 200601
  2. HERCEPTIN [Suspect]
     Route: 065
     Dates: start: 201101, end: 201105
  3. HERCEPTIN [Suspect]
     Route: 065
     Dates: start: 201112
  4. HERCEPTIN [Suspect]
     Route: 065
     Dates: start: 200603
  5. DOCETAXEL [Suspect]
     Indication: BREAST CANCER METASTATIC
     Route: 065
     Dates: start: 201101, end: 201105
  6. DOCETAXEL [Suspect]
     Route: 065
     Dates: start: 201112
  7. XELODA [Suspect]
     Indication: BREAST CANCER METASTATIC
     Route: 065
     Dates: start: 201101, end: 201105
  8. LAPATINIB [Suspect]
     Indication: BREAST CANCER METASTATIC
     Route: 065
     Dates: start: 201105
  9. LAPATINIB [Suspect]
     Route: 065
     Dates: start: 201108
  10. DOXORUBICIN/DOXORUBICIN HYDROCHLORIDE [Suspect]
     Indication: BREAST CANCER METASTATIC
     Route: 065
     Dates: start: 201105
  11. DOXORUBICIN/DOXORUBICIN HYDROCHLORIDE [Suspect]
     Route: 065
     Dates: start: 201108
  12. CYCLOPHOSPHAMIDE [Suspect]
     Indication: BREAST CANCER METASTATIC
     Route: 065
     Dates: start: 201105
  13. CARBOPLATIN [Suspect]
     Indication: BREAST CANCER METASTATIC
     Route: 065
     Dates: start: 201201
  14. CARBOPLATIN [Suspect]
     Route: 065
     Dates: start: 201203
  15. CARBOPLATIN [Suspect]
     Route: 065
     Dates: start: 201205, end: 201208
  16. GEMCITABINE HYDROCHLORIDE [Suspect]
     Indication: BREAST CANCER METASTATIC
     Route: 065
     Dates: start: 201201
  17. GEMCITABINE HYDROCHLORIDE [Suspect]
     Route: 065
     Dates: start: 201203
  18. GEMCITABINE HYDROCHLORIDE [Suspect]
     Route: 065
     Dates: start: 201205, end: 201208
  19. ZOLEDRONIC ACID [Suspect]
     Indication: BREAST CANCER METASTATIC
     Route: 065
     Dates: start: 201203

REACTIONS (6)
  - Toxicity to various agents [Unknown]
  - Disease progression [Unknown]
  - Left ventricular dysfunction [Unknown]
  - Haematotoxicity [Unknown]
  - Metastases to bone [Not Recovered/Not Resolved]
  - Ejection fraction decreased [Recovering/Resolving]
